FAERS Safety Report 4614288-5 (Version None)
Quarter: 2005Q1

REPORT INFORMATION
  Report Type: 
  Country: None (occurrence: None)
  Receive Date: 20050315
  Receipt Date: 20050224
  Transmission Date: 20050727
  Serious: Yes (Other)
  Sender: FDA-Public Use
  Company Number: USA050291763

PATIENT

DRUGS (1)
  1. FORTEO [Suspect]

REACTIONS (1)
  - BLOOD CALCIUM INCREASED [None]
